FAERS Safety Report 8194248-0 (Version None)
Quarter: 2012Q1

REPORT INFORMATION
  Report Type: 
  Country: None (occurrence: None)
  Receive Date: 20120308
  Receipt Date: 20120219
  Transmission Date: 20120608
  Serious: Yes (Disabling)
  Sender: FDA-Public Use
  Company Number: BE-GLAXOSMITHKLINE-B0783005A

PATIENT
  Sex: Female
  Weight: 55 kg

DRUGS (4)
  1. TOPAMAX [Concomitant]
     Indication: MIGRAINE
     Dosage: 200MG PER DAY
  2. PANTOMED (PANTROPRAZOLE) [Concomitant]
     Indication: DYSPEPSIA
     Dosage: 40MG PER DAY
  3. ESCITALOPRAM OXALATE [Concomitant]
     Indication: DEPRESSION
     Dosage: 20MG PER DAY
  4. NICOTINE [Suspect]
     Indication: EX-TOBACCO USER
     Dosage: 21MG PER DAY
     Route: 062

REACTIONS (1)
  - MYALGIA [None]
